FAERS Safety Report 15656635 (Version 5)
Quarter: 2021Q2

REPORT INFORMATION
  Report Type: Spontaneous
  Country: US (occurrence: US)
  Receive Date: 20181126
  Receipt Date: 20210517
  Transmission Date: 20210716
  Serious: Yes (Hospitalization, Other)
  Sender: FDA-Public Use
  Company Number: US-GILEAD-2018-0376156

PATIENT
  Age: 48 Year
  Sex: Female
  Weight: 53.52 kg

DRUGS (32)
  1. VENTOLIN HFA [Concomitant]
     Active Substance: ALBUTEROL SULFATE
  2. TRIUMEQ [Concomitant]
     Active Substance: ABACAVIR SULFATE\DOLUTEGRAVIR SODIUM\LAMIVUDINE
  3. MORPHINE SULFATE. [Concomitant]
     Active Substance: MORPHINE SULFATE
  4. CALCIUM [Concomitant]
     Active Substance: CALCIUM
  5. ATRIPLA [Suspect]
     Active Substance: EFAVIRENZ\EMTRICITABINE\TENOFOVIR DISOPROXIL FUMARATE
     Indication: HIV INFECTION
     Dosage: UNK
     Route: 048
     Dates: start: 2006, end: 20181203
  6. KLONOPIN [Concomitant]
     Active Substance: CLONAZEPAM
  7. VALIUM [Concomitant]
     Active Substance: DIAZEPAM
  8. ZOLPIDEM [Concomitant]
     Active Substance: ZOLPIDEM TARTRATE
  9. TIZANIDINE. [Concomitant]
     Active Substance: TIZANIDINE
  10. TERBINAFINE. [Concomitant]
     Active Substance: TERBINAFINE
  11. AMITIZA [Concomitant]
     Active Substance: LUBIPROSTONE
  12. FOSAMAX [Concomitant]
     Active Substance: ALENDRONATE SODIUM
  13. MELOXICAM. [Concomitant]
     Active Substance: MELOXICAM
  14. ESTRADIOL. [Concomitant]
     Active Substance: ESTRADIOL
  15. AMOXICILLIN. [Concomitant]
     Active Substance: AMOXICILLIN
  16. MIRTAZAPINE. [Concomitant]
     Active Substance: MIRTAZAPINE
  17. PROGESTERONE. [Concomitant]
     Active Substance: PROGESTERONE
  18. ALENDRONATE [Concomitant]
     Active Substance: ALENDRONATE SODIUM
  19. CHANTIX [Concomitant]
     Active Substance: VARENICLINE TARTRATE
  20. PROLIA [Concomitant]
     Active Substance: DENOSUMAB
  21. HYDROMORPHONE [Concomitant]
     Active Substance: HYDROMORPHONE
  22. CEFDINIR. [Concomitant]
     Active Substance: CEFDINIR
  23. STRIBILD [Suspect]
     Active Substance: COBICISTAT\ELVITEGRAVIR\EMTRICITABINE\TENOFOVIR DISOPROXIL FUMARATE
     Indication: HIV INFECTION
     Dosage: UNK
     Route: 048
     Dates: start: 20160210, end: 20160713
  24. TRUVADA [Suspect]
     Active Substance: EMTRICITABINE\TENOFOVIR DISOPROXIL FUMARATE
     Indication: HIV INFECTION
     Dosage: UNK
     Route: 048
     Dates: start: 2004, end: 2005
  25. QUETIAPINE. [Concomitant]
     Active Substance: QUETIAPINE
  26. CALCIUM + VIT D [Concomitant]
     Active Substance: CALCIUM\VITAMIN D
  27. CLORAZEPATE [Concomitant]
     Active Substance: CLORAZEPATE DIPOTASSIUM
  28. SEROQUEL [Concomitant]
     Active Substance: QUETIAPINE FUMARATE
  29. METOCLOPRAMIDE. [Concomitant]
     Active Substance: METOCLOPRAMIDE
  30. ONDANSETRON [Concomitant]
     Active Substance: ONDANSETRON
  31. PREMARIN [Concomitant]
     Active Substance: ESTROGENS, CONJUGATED
  32. VITAMIN D NOS [Concomitant]
     Active Substance: VITAMIN D NOS

REACTIONS (15)
  - Femur fracture [Unknown]
  - Bone density decreased [Unknown]
  - Emotional distress [Not Recovered/Not Resolved]
  - Economic problem [Unknown]
  - Adverse drug reaction [Unknown]
  - Lower limb fracture [Not Recovered/Not Resolved]
  - Skeletal injury [Unknown]
  - Lower limb fracture [Recovered/Resolved]
  - Pain [Not Recovered/Not Resolved]
  - Anhedonia [Not Recovered/Not Resolved]
  - Osteoporosis [Not Recovered/Not Resolved]
  - Osteopenia [Not Recovered/Not Resolved]
  - Renal injury [Unknown]
  - Musculoskeletal disorder [Unknown]
  - Anxiety [Not Recovered/Not Resolved]

NARRATIVE: CASE EVENT DATE: 2007
